FAERS Safety Report 11340805 (Version 2)
Quarter: 2015Q3

REPORT INFORMATION
  Report Type: Report from Study
  Country: US (occurrence: US)
  Receive Date: 20150805
  Receipt Date: 20150810
  Transmission Date: 20151125
  Serious: Yes (Death, Hospitalization)
  Sender: FDA-Public Use
  Company Number: US-ROCHE-1613313

PATIENT
  Age: 63 Year
  Sex: Female
  Weight: 67.3 kg

DRUGS (2)
  1. VEMURAFENIB [Suspect]
     Active Substance: VEMURAFENIB
     Indication: CHOLANGIOCARCINOMA
     Dosage: CYCLE 1 DAY 3, DATE OF MOST RECENT DOSE PRIOR TO EVENT: 27/JUL/2015
     Route: 048
     Dates: start: 20150721, end: 20150727
  2. XARELTO [Concomitant]
     Active Substance: RIVAROXABAN
     Indication: DEEP VEIN THROMBOSIS
     Route: 065
     Dates: start: 201506, end: 20150723

REACTIONS (3)
  - Acute respiratory distress syndrome [Fatal]
  - Thrombocytopenia [Not Recovered/Not Resolved]
  - Anaemia [Not Recovered/Not Resolved]

NARRATIVE: CASE EVENT DATE: 20150723
